FAERS Safety Report 11682419 (Version 1)
Quarter: 2015Q4

REPORT INFORMATION
  Report Type: Spontaneous
  Country: NO (occurrence: NO)
  Receive Date: 20151029
  Receipt Date: 20151029
  Transmission Date: 20160304
  Serious: Yes (Other)
  Sender: FDA-Public Use
  Company Number: NO-ELI_LILLY_AND_COMPANY-NO201509005954

PATIENT
  Age: 41 Year
  Sex: Female

DRUGS (2)
  1. ZYPADHERA [Suspect]
     Active Substance: OLANZAPINE PAMOATE
     Indication: PRODUCT USED FOR UNKNOWN INDICATION
     Dosage: UNK, UNKNOWN
     Route: 065
     Dates: start: 20140507
  2. RIVOTRIL [Concomitant]
     Active Substance: CLONAZEPAM
     Dosage: 0.5 MG, TID
     Route: 065

REACTIONS (10)
  - Anxiety [Unknown]
  - Agitation [Unknown]
  - Dizziness [Unknown]
  - Tachycardia [Unknown]
  - Tic [Recovering/Resolving]
  - Balance disorder [Unknown]
  - Hypertension [Unknown]
  - Ataxia [Recovering/Resolving]
  - Paraesthesia [Recovering/Resolving]
  - Mental impairment [Unknown]

NARRATIVE: CASE EVENT DATE: 200203
